FAERS Safety Report 16886236 (Version 1)
Quarter: 2019Q4

REPORT INFORMATION
  Report Type: Spontaneous
  Country: CA (occurrence: CA)
  Receive Date: 20191004
  Receipt Date: 20191004
  Transmission Date: 20200122
  Serious: Yes (Other)
  Sender: FDA-Public Use
  Company Number: CA-NALPROPION PHARMACEUTICALS INC.-2019-008660

PATIENT

DRUGS (1)
  1. CONTRAVE [Suspect]
     Active Substance: BUPROPION HYDROCHLORIDE\NALTREXONE HYDROCHLORIDE
     Indication: WEIGHT CONTROL
     Dosage: UNK
     Route: 048
     Dates: start: 20190915, end: 20190918

REACTIONS (6)
  - Dizziness [Unknown]
  - Visual impairment [Unknown]
  - Heart rate increased [Unknown]
  - Hot flush [Unknown]
  - Syncope [Unknown]
  - Near death experience [Unknown]

NARRATIVE: CASE EVENT DATE: 201909
